FAERS Safety Report 5056257-X (Version None)
Quarter: 2006Q3

REPORT INFORMATION
  Report Type: 
  Country: None (occurrence: None)
  Receive Date: 20060720
  Receipt Date: 20060621
  Transmission Date: 20061208
  Serious: Yes (Hospitalization, Other)
  Sender: FDA-Public Use
  Company Number: US-AVENTIS-200616669GDDC

PATIENT
  Age: 53 Year
  Sex: Male
  Weight: 50.8 kg

DRUGS (3)
  1. DOCETAXEL [Suspect]
     Indication: SQUAMOUS CELL CARCINOMA
     Route: 042
     Dates: start: 20060607, end: 20060607
  2. PLACEBO [Suspect]
     Indication: SQUAMOUS CELL CARCINOMA
     Route: 048
     Dates: start: 20060510, end: 20060615
  3. PERCOCET-5 [Concomitant]
     Dosage: DOSE: FOUR TIMES DAILY PRN
     Route: 048

REACTIONS (7)
  - ANAEMIA [None]
  - CELLULITIS [None]
  - DISEASE PROGRESSION [None]
  - HYPONATRAEMIA [None]
  - ORAL PAIN [None]
  - SQUAMOUS CELL CARCINOMA [None]
  - WHITE BLOOD CELL COUNT INCREASED [None]
